FAERS Safety Report 10702562 (Version 5)
Quarter: 2016Q1

REPORT INFORMATION
  Report Type: Spontaneous
  Country: US (occurrence: US)
  Receive Date: 20150109
  Receipt Date: 20160331
  Transmission Date: 20160525
  Serious: Yes (Hospitalization, Other)
  Sender: FDA-Public Use
  Company Number: US-PFIZER INC-2015005340

PATIENT
  Age: 65 Year
  Sex: Female
  Weight: 90.72 kg

DRUGS (19)
  1. CYCLOBENZAPRINE [Concomitant]
     Active Substance: CYCLOBENZAPRINE
     Dosage: 10 MG, AS NEEDED
     Dates: start: 2011
  2. ESTAZOLAM. [Concomitant]
     Active Substance: ESTAZOLAM
     Indication: PARASOMNIA
  3. REVATIO [Suspect]
     Active Substance: SILDENAFIL CITRATE
     Dosage: 20 MG, 3X/DAY
     Dates: start: 201005
  4. LETAIRIS [Suspect]
     Active Substance: AMBRISENTAN
     Dosage: UNK
  5. ESTAZOLAM. [Concomitant]
     Active Substance: ESTAZOLAM
     Indication: SLEEP DISORDER
     Dosage: 2 MG, (AT BED TIME) AS NEEDED
     Dates: start: 1991
  6. MELATONIN [Concomitant]
     Active Substance: MELATONIN
     Dosage: UNK
     Dates: start: 1998
  7. LEVOTHYROXINE. [Concomitant]
     Active Substance: LEVOTHYROXINE
     Indication: THYROID DISORDER
     Dosage: 137 ^MG^, DAILY
     Dates: start: 1994
  8. DILTIAZEM [Concomitant]
     Active Substance: DILTIAZEM
     Dosage: 30 MG, 2X/DAY
     Dates: start: 2013
  9. SPIRONOLACTONE. [Concomitant]
     Active Substance: SPIRONOLACTONE
     Dosage: 25 MG, 1X/DAY
     Dates: start: 2010
  10. TRAMADOL. [Concomitant]
     Active Substance: TRAMADOL
     Dosage: 50 MG, AS NEEDED
     Dates: start: 2014
  11. IBANDRONATE SODIUM. [Concomitant]
     Active Substance: IBANDRONATE SODIUM
     Dosage: 150 MG, MONTHLY
     Dates: start: 201409
  12. LANTUS [Concomitant]
     Active Substance: INSULIN GLARGINE
     Dosage: 5 UNITS, UNK
     Dates: start: 199510
  13. BUMETANIDE. [Concomitant]
     Active Substance: BUMETANIDE
     Dosage: 2 MG, 2X/DAY
     Dates: start: 201012
  14. METOLAZONE. [Concomitant]
     Active Substance: METOLAZONE
     Indication: SWELLING
     Dosage: 2.5 MG, ONE TO TWO DAYS AS NEEDED
     Dates: start: 2010
  15. SIMVASTATIN. [Concomitant]
     Active Substance: SIMVASTATIN
     Dosage: 40 MG, 1X/DAY
     Dates: start: 2010
  16. REVATIO [Suspect]
     Active Substance: SILDENAFIL CITRATE
     Indication: PULMONARY HYPERTENSION
     Dosage: 20 MG, 2X/DAY
     Route: 048
     Dates: start: 201004
  17. COUMADIN [Concomitant]
     Active Substance: WARFARIN SODIUM
     Indication: IMPLANTABLE DEFIBRILLATOR INSERTION
     Dosage: 5 MG, 5 DAYS A WEEK
     Dates: start: 199510
  18. COUMADIN [Concomitant]
     Active Substance: WARFARIN SODIUM
     Dosage: 7.5 MG OTHER 2 DAYS OF THE WEEK
  19. FLUTICASONE [Concomitant]
     Active Substance: FLUTICASONE\FLUTICASONE PROPIONATE
     Dosage: 50 ?G, UNK
     Dates: start: 2000

REACTIONS (7)
  - Drug dose omission [Unknown]
  - Pulmonary arterial pressure decreased [Not Recovered/Not Resolved]
  - Swelling [Not Recovered/Not Resolved]
  - Weight decreased [Not Recovered/Not Resolved]
  - Fluid retention [Not Recovered/Not Resolved]
  - Feeling abnormal [Unknown]
  - Photopsia [Unknown]

NARRATIVE: CASE EVENT DATE: 201005
